FAERS Safety Report 10288285 (Version 2)
Quarter: 2014Q4

REPORT INFORMATION
  Report Type: Spontaneous
  Country: IE (occurrence: IE)
  Receive Date: 20140709
  Receipt Date: 20141010
  Transmission Date: 20150528
  Serious: Yes (Other)
  Sender: FDA-Public Use
  Company Number: IE-PFIZER INC-2014187945

PATIENT
  Sex: Female

DRUGS (3)
  1. MENOPUR [Suspect]
     Active Substance: FOLLICLE STIMULATING HORMONE BETA POLYPEPTIDE\LUTROPIN ALFA
     Dosage: 225 IU, DAILY
     Dates: start: 20140410
  2. PREGNYL [Suspect]
     Active Substance: CHORIOGONADOTROPIN ALFA
     Dosage: 10000 IU, DAILY
     Dates: start: 20140420
  3. SYNAREL [Suspect]
     Active Substance: NAFARELIN ACETATE
     Dosage: UNK
     Dates: start: 20140420

REACTIONS (2)
  - Ovarian hyperstimulation syndrome [Recovered/Resolved]
  - Abortion spontaneous [Unknown]

NARRATIVE: CASE EVENT DATE: 20140506
